FAERS Safety Report 5053223-5 (Version None)
Quarter: 2006Q3

REPORT INFORMATION
  Report Type: 
  Country: None (occurrence: None)
  Receive Date: 20060712
  Receipt Date: 20060621
  Transmission Date: 20061208
  Serious: Yes (Hospitalization)
  Sender: FDA-Public Use
  Company Number: 163-21880-06040858

PATIENT
  Sex: 0

DRUGS (1)
  1. REVLIMID [Suspect]
     Dosage: ORAL
     Route: 048

REACTIONS (1)
  - NO ADVERSE EFFECT [None]
